FAERS Safety Report 17926208 (Version 1)
Quarter: 2020Q2

REPORT INFORMATION
  Report Type: Spontaneous
  Country: US (occurrence: US)
  Receive Date: 20200623
  Receipt Date: 20200623
  Transmission Date: 20200714
  Serious: No
  Sender: FDA-Public Use
  Company Number: US-TEVA-2020-US-1789606

PATIENT
  Age: 69 Year
  Sex: Female

DRUGS (1)
  1. CLONAZEPAM TEVA [Suspect]
     Active Substance: CLONAZEPAM
     Indication: PETIT MAL EPILEPSY
     Route: 065
     Dates: start: 202003

REACTIONS (2)
  - Drug ineffective [Unknown]
  - Product substitution issue [Unknown]
